FAERS Safety Report 9618831 (Version 1)
Quarter: 2013Q4

REPORT INFORMATION
  Report Type: Spontaneous
  Country: JP (occurrence: JP)
  Receive Date: 20131014
  Receipt Date: 20131014
  Transmission Date: 20140711
  Serious: Yes (Other)
  Sender: FDA-Public Use
  Company Number: JP-BAYER-2013-120488

PATIENT
  Age: 70 Year
  Sex: Male

DRUGS (1)
  1. NEXAVAR [Suspect]
     Indication: RENAL CELL CARCINOMA
     Dosage: UNK
     Route: 048
     Dates: start: 201102, end: 201111

REACTIONS (3)
  - Hypertrophic cardiomyopathy [Recovering/Resolving]
  - Cardiac hypertrophy [Recovering/Resolving]
  - Electrocardiogram T wave inversion [Recovering/Resolving]
